FAERS Safety Report 5087256-X (Version None)
Quarter: 2006Q3

REPORT INFORMATION
  Report Type: 
  Country: None (occurrence: None)
  Receive Date: 20060824
  Receipt Date: 20060816
  Transmission Date: 20061208
  Serious: Yes (Hospitalization)
  Sender: FDA-Public Use
  Company Number: PHEH2006US10558

PATIENT
  Age: 66 Year
  Sex: Male
  Weight: 99.773 kg

DRUGS (5)
  1. DIOVAN HCT [Suspect]
     Indication: HYPERTENSION
     Dosage: 160MG VAL/12.5MG HCT, QD
     Route: 048
     Dates: start: 20050411, end: 20060817
  2. SOMA [Concomitant]
  3. LORTAB [Concomitant]
  4. COUMADIN [Concomitant]
  5. DIGITEK [Concomitant]
     Dosage: 0.125MG, UNK

REACTIONS (1)
  - ATRIAL FIBRILLATION [None]
